FAERS Safety Report 4700719-9 (Version None)
Quarter: 2005Q2

REPORT INFORMATION
  Report Type: 
  Country: None (occurrence: None)
  Receive Date: 20050627
  Receipt Date: 20050617
  Transmission Date: 20051028
  Serious: Yes (Hospitalization)
  Sender: FDA-Public Use
  Company Number: 8010879

PATIENT
  Age: 34 Year
  Sex: Female

DRUGS (6)
  1. KEPPRA [Suspect]
     Dosage: 1000 MG /D PO
     Route: 048
     Dates: start: 20040515, end: 20050510
  2. PHENYTOIN [Suspect]
     Dosage: 200 MG /D PO
     Route: 048
     Dates: start: 20041210
  3. STEDIRIL [Suspect]
     Dosage: 1 DF /D PO
     Route: 048
     Dates: start: 20010215
  4. URBANYL [Suspect]
     Dosage: 15 MG /D PO
     Route: 048
  5. PHENOBARBITAL [Concomitant]
  6. DEPAKINE /00228502/ [Concomitant]

REACTIONS (2)
  - BENIGN HEPATIC NEOPLASM [None]
  - CHOLESTASIS [None]
